FAERS Safety Report 23827985 (Version 1)
Quarter: 2024Q2

REPORT INFORMATION
  Report Type: Spontaneous
  Country: PT (occurrence: PT)
  Receive Date: 20240507
  Receipt Date: 20240507
  Transmission Date: 20240716
  Serious: Yes (Other)
  Sender: FDA-Public Use
  Company Number: PT-009507513-2405PRT000812

PATIENT
  Age: 46 Year
  Sex: Female

DRUGS (4)
  1. PEMBROLIZUMAB [Suspect]
     Active Substance: PEMBROLIZUMAB
     Indication: Triple negative breast cancer
     Dosage: UNK
     Dates: start: 202305
  2. PEMBROLIZUMAB [Suspect]
     Active Substance: PEMBROLIZUMAB
     Dosage: UNK
     Dates: start: 202306
  3. PACLITAXEL [Suspect]
     Active Substance: PACLITAXEL
     Indication: Triple negative breast cancer
     Dosage: UNK
     Dates: start: 202305
  4. CARBOPLATIN [Suspect]
     Active Substance: CARBOPLATIN
     Indication: Triple negative breast cancer
     Dosage: UNK
     Dates: start: 202305

REACTIONS (6)
  - Malignant neoplasm progression [Unknown]
  - Radiotherapy [Recovered/Resolved]
  - Mastectomy [Unknown]
  - Radiation skin injury [Unknown]
  - BRCA1 gene mutation [Unknown]
  - Therapy change [Unknown]

NARRATIVE: CASE EVENT DATE: 20230501
